FAERS Safety Report 7452727-5 (Version None)
Quarter: 2011Q2

REPORT INFORMATION
  Report Type: 
  Country: None (occurrence: None)
  Receive Date: 20110502
  Receipt Date: 20101130
  Transmission Date: 20111010
  Serious: No
  Sender: FDA-Public Use
  Company Number: US-ASTRAZENECA-2010SE53046

PATIENT
  Age: 52 Year
  Sex: Female

DRUGS (6)
  1. PRILOSEC [Concomitant]
  2. EFFEXOR XR [Concomitant]
  3. NEXIUM [Suspect]
     Route: 048
  4. WELLBUTRIN [Concomitant]
  5. M.V.I. [Concomitant]
  6. SEROQUEL [Suspect]
     Indication: HALLUCINATION, AUDITORY
     Dosage: DAILY
     Route: 048
     Dates: start: 20100901, end: 20100901

REACTIONS (5)
  - FATIGUE [None]
  - INCORRECT DOSE ADMINISTERED [None]
  - DRUG DOSE OMISSION [None]
  - SOMNOLENCE [None]
  - ADVERSE EVENT [None]
